FAERS Safety Report 16856747 (Version 2)
Quarter: 2019Q4

REPORT INFORMATION
  Report Type: Report from Study
  Country: JP (occurrence: JP)
  Receive Date: 20190926
  Receipt Date: 20191218
  Transmission Date: 20200122
  Serious: Yes (Hospitalization, Other)
  Sender: FDA-Public Use
  Company Number: JP-INCYTE CORPORATION-2018IN012626

PATIENT

DRUGS (4)
  1. JAKAVI [Suspect]
     Active Substance: RUXOLITINIB
     Dosage: 5 MG, BID
     Route: 048
     Dates: start: 20170713, end: 20180803
  2. JAKAVI [Suspect]
     Active Substance: RUXOLITINIB
     Indication: POLYCYTHAEMIA VERA
     Dosage: 10 MG, BID
     Route: 048
     Dates: start: 20170601, end: 20170712
  3. JAKAVI [Suspect]
     Active Substance: RUXOLITINIB
     Dosage: 5 MG, QOD, ALTERNATIVE ORAL ADMINISTRATION OF 10 MG AND 5 MG
     Route: 048
     Dates: start: 20180804
  4. JAKAVI [Suspect]
     Active Substance: RUXOLITINIB
     Dosage: 10 MG, QOD
     Route: 048
     Dates: start: 20180804

REACTIONS (9)
  - Blood creatinine abnormal [Unknown]
  - Lymphopenia [Unknown]
  - Anaemia [Not Recovered/Not Resolved]
  - Alanine aminotransferase abnormal [Unknown]
  - Blood urea increased [Not Recovered/Not Resolved]
  - Renal impairment [Not Recovered/Not Resolved]
  - Malaise [Unknown]
  - Thrombocytopenia [Unknown]
  - Calculus urinary [Unknown]

NARRATIVE: CASE EVENT DATE: 20170713
